FAERS Safety Report 7007749-5 (Version None)
Quarter: 2010Q3

REPORT INFORMATION
  Report Type: 
  Country: None (occurrence: None)
  Receive Date: 20100920
  Receipt Date: 20100903
  Transmission Date: 20110219
  Serious: Yes (Hospitalization, Other)
  Sender: FDA-Public Use
  Company Number: JPI-P-012116

PATIENT
  Age: 45 Year
  Sex: Male
  Weight: 86.1834 kg

DRUGS (5)
  1. XYREM [Suspect]
     Indication: NARCOLEPSY
     Dosage: 4.5 GM (2.25 GM, 2 IN1 D) ORAL; 9 GM (4.5 GM, 2 IN 1 D) ORAL; 7.5 GM (3.75 GM, 2 IN 1 D) ORAL
     Route: 048
     Dates: start: 20030328, end: 20090101
  2. XYREM [Suspect]
     Indication: NARCOLEPSY
     Dosage: 4.5 GM (2.25 GM, 2 IN1 D) ORAL; 9 GM (4.5 GM, 2 IN 1 D) ORAL; 7.5 GM (3.75 GM, 2 IN 1 D) ORAL
     Route: 048
     Dates: start: 20090312, end: 20090101
  3. XYREM [Suspect]
     Indication: NARCOLEPSY
     Dosage: 4.5 GM (2.25 GM, 2 IN1 D) ORAL; 9 GM (4.5 GM, 2 IN 1 D) ORAL; 7.5 GM (3.75 GM, 2 IN 1 D) ORAL
     Route: 048
     Dates: start: 20090101
  4. MODAFINIL [Concomitant]
  5. MULTI-VITAMIN [Concomitant]

REACTIONS (9)
  - AMNESIA [None]
  - CHOLECYSTITIS INFECTIVE [None]
  - CHOLELITHIASIS [None]
  - DISTURBANCE IN ATTENTION [None]
  - FALL [None]
  - HEAD INJURY [None]
  - MIDDLE INSOMNIA [None]
  - PAIN [None]
  - SCAR [None]
